FAERS Safety Report 13358340 (Version 1)
Quarter: 2017Q1

REPORT INFORMATION
  Report Type: Spontaneous
  Country: US (occurrence: US)
  Receive Date: 20170321
  Receipt Date: 20170321
  Transmission Date: 20170429
  Serious: No
  Sender: FDA-Public Use
  Company Number: None

PATIENT
  Age: 52 Year
  Sex: Female
  Weight: 63 kg

DRUGS (3)
  1. MOVE FREE SUPPLEMENTS [Concomitant]
  2. CIPROFLOXACIN HCL [Suspect]
     Active Substance: CIPROFLOXACIN HYDROCHLORIDE
     Indication: NEPHROLITHIASIS
     Dosage: ?          QUANTITY:1 TABLET(S);?
     Route: 048
  3. CIPROFLOXACIN HCL [Suspect]
     Active Substance: CIPROFLOXACIN HYDROCHLORIDE
     Indication: URINARY TRACT INFECTION
     Dosage: ?          QUANTITY:1 TABLET(S);?
     Route: 048

REACTIONS (7)
  - Muscular weakness [None]
  - Arthralgia [None]
  - Meniscus injury [None]
  - Bone pain [None]
  - Asthenia [None]
  - Gait disturbance [None]
  - Musculoskeletal stiffness [None]

NARRATIVE: CASE EVENT DATE: 20170211
